FAERS Safety Report 6385172-4 (Version None)
Quarter: 2009Q4

REPORT INFORMATION
  Report Type: 
  Country: None (occurrence: None)
  Receive Date: 20091002
  Receipt Date: 20081107
  Transmission Date: 20100525
  Serious: No
  Sender: FDA-Public Use
  Company Number: US-ASTRAZENECA-2006UW06868

PATIENT
  Age: 56 Year
  Sex: Female
  Weight: 68 kg

DRUGS (7)
  1. ARIMIDEX [Suspect]
     Indication: BREAST CANCER
     Route: 048
  2. FLEXERIL [Concomitant]
  3. ALEVE [Concomitant]
  4. XANAX [Concomitant]
  5. GLUCOPHAGE [Concomitant]
  6. PAXIL [Concomitant]
  7. LORTAB [Concomitant]

REACTIONS (4)
  - ILL-DEFINED DISORDER [None]
  - LYMPHOEDEMA [None]
  - NECK PAIN [None]
  - OSTEOARTHRITIS [None]
